FAERS Safety Report 23261408 (Version 1)
Quarter: 2023Q4

REPORT INFORMATION
  Report Type: Spontaneous
  Country: RU (occurrence: RU)
  Receive Date: 20231205
  Receipt Date: 20231205
  Transmission Date: 20240110
  Serious: Yes (Other)
  Sender: FDA-Public Use
  Company Number: RU-AstraZeneca-2023-63474

PATIENT

DRUGS (5)
  1. METOPROLOL SUCCINATE [Suspect]
     Active Substance: METOPROLOL SUCCINATE
     Indication: Sinus tachycardia
     Route: 048
  2. LONGIDAZA [Concomitant]
     Indication: Product used for unknown indication
  3. OZEMPIC [Concomitant]
     Active Substance: SEMAGLUTIDE
     Indication: Product used for unknown indication
  4. PULMICORT TURBUHALER [Concomitant]
     Active Substance: BUDESONIDE
     Indication: Bronchospasm
  5. SYMBICORT [Concomitant]
     Active Substance: BUDESONIDE\FORMOTEROL FUMARATE DIHYDRATE
     Indication: Bronchospasm

REACTIONS (10)
  - Type 2 diabetes mellitus [Unknown]
  - COVID-19 [Recovered/Resolved]
  - COVID-19 pneumonia [Recovered/Resolved]
  - Pulmonary fibrosis [Unknown]
  - Bronchospasm [Recovered/Resolved]
  - Lymphadenopathy [Unknown]
  - Viral infection [Recovered/Resolved]
  - Bronchial disorder [Recovered/Resolved]
  - Drug ineffective [Unknown]
  - Off label use [Unknown]
